FAERS Safety Report 13902315 (Version 1)
Quarter: 2017Q3

REPORT INFORMATION
  Report Type: Spontaneous
  Country: DK (occurrence: DK)
  Receive Date: 20170824
  Receipt Date: 20170824
  Transmission Date: 20171127
  Serious: Yes (Hospitalization, Disabling)
  Sender: FDA-Public Use
  Company Number: DK-TEVA-798117ACC

PATIENT
  Age: 71 Year
  Sex: Male

DRUGS (9)
  1. CEFUROXIM [Concomitant]
     Active Substance: CEFUROXIME
     Dates: start: 201504
  2. DICLOCIL [Suspect]
     Active Substance: DICLOXACILLIN SODIUM
     Indication: URINARY TRACT INFECTION
     Route: 042
     Dates: start: 20150302, end: 201504
  3. DICLOFENAC [Suspect]
     Active Substance: DICLOFENAC
     Indication: PAIN
     Route: 048
     Dates: start: 201411
  4. PREDNISOLON [Concomitant]
     Active Substance: PREDNISOLONE
     Dates: start: 20150203
  5. ZINACEF [Concomitant]
     Active Substance: CEFUROXIME SODIUM
     Dates: start: 201504, end: 20150611
  6. SOLU-MEDROL [Concomitant]
     Active Substance: METHYLPREDNISOLONE SODIUM SUCCINATE
     Dates: start: 20150430
  7. TAZOCIN [Concomitant]
     Active Substance: PIPERACILLIN SODIUM\TAZOBACTAM SODIUM
     Indication: URINARY TRACT INFECTION
     Route: 042
     Dates: start: 20150301
  8. NATRIUMHYDROGENCARBONAT [Concomitant]
     Active Substance: SODIUM BICARBONATE
     Dates: start: 20150430
  9. IBUMETIN [Suspect]
     Active Substance: IBUPROFEN

REACTIONS (28)
  - Crying [Not Recovered/Not Resolved]
  - Gastric ulcer haemorrhage [Unknown]
  - Urinary tract infection [Unknown]
  - Glomerular filtration rate decreased [Unknown]
  - Musculoskeletal pain [Unknown]
  - Pneumonia [Unknown]
  - Tubulointerstitial nephritis [Unknown]
  - Cataract [Unknown]
  - Haematemesis [Unknown]
  - Quality of life decreased [Not Recovered/Not Resolved]
  - Walking disability [Not Recovered/Not Resolved]
  - Blood creatinine increased [Unknown]
  - Hypertension [Unknown]
  - Vomiting [Unknown]
  - Asthenia [Unknown]
  - Renal impairment [Not Recovered/Not Resolved]
  - Weight decreased [Unknown]
  - Vitritis [Unknown]
  - Pruritus [Unknown]
  - Arthralgia [Unknown]
  - Spondylitis [Unknown]
  - Blindness unilateral [Not Recovered/Not Resolved]
  - Musculoskeletal stiffness [Not Recovered/Not Resolved]
  - Diarrhoea [Unknown]
  - Fatigue [Unknown]
  - Food aversion [Unknown]
  - Haemodialysis [Not Recovered/Not Resolved]
  - Visual impairment [Unknown]

NARRATIVE: CASE EVENT DATE: 2015
